FAERS Safety Report 16432714 (Version 1)
Quarter: 2019Q2

REPORT INFORMATION
  Report Type: Spontaneous
  Country: GB (occurrence: GB)
  Receive Date: 20190614
  Receipt Date: 20190614
  Transmission Date: 20190711
  Serious: Yes (Hospitalization)
  Sender: FDA-Public Use
  Company Number: GB-MYLANLABS-2019M1054879

PATIENT
  Age: 60 Year
  Sex: Female

DRUGS (1)
  1. CARBAMAZEPINE. [Suspect]
     Active Substance: CARBAMAZEPINE
     Indication: EPILEPSY
     Dosage: 600MG MORNING AND 400MG NIGHT.
     Route: 048

REACTIONS (5)
  - Confusional state [Recovering/Resolving]
  - Toxicity to various agents [Unknown]
  - Somnolence [Recovering/Resolving]
  - Vision blurred [Recovering/Resolving]
  - Disorientation [Recovering/Resolving]

NARRATIVE: CASE EVENT DATE: 20181204
